FAERS Safety Report 7073442-6 (Version None)
Quarter: 2010Q4

REPORT INFORMATION
  Report Type: 
  Country: None (occurrence: None)
  Receive Date: 20101029
  Receipt Date: 20100618
  Transmission Date: 20110411
  Serious: No
  Sender: FDA-Public Use
  Company Number: A0866094A

PATIENT
  Age: 68 Year
  Sex: Female

DRUGS (7)
  1. ADVAIR DISKUS 100/50 [Suspect]
     Indication: EMPHYSEMA
     Dosage: 1PUFF TWICE PER DAY
     Route: 055
     Dates: start: 20070101
  2. SPIRIVA [Concomitant]
  3. MINOCYCLINE HCL [Concomitant]
  4. GABAPENTIN [Concomitant]
  5. METFORMIN [Concomitant]
  6. ALPRAZOLAM [Concomitant]
  7. DIOVAN [Concomitant]

REACTIONS (2)
  - DYSPNOEA [None]
  - INHALATION THERAPY [None]
